FAERS Safety Report 6783811-7 (Version None)
Quarter: 2010Q2

REPORT INFORMATION
  Report Type: 
  Country: None (occurrence: None)
  Receive Date: 20100622
  Receipt Date: 20100609
  Transmission Date: 20101027
  Serious: Yes (Death, Life-Threatening, Hospitalization, Other)
  Sender: FDA-Public Use
  Company Number: PHEH2006US05810

PATIENT
  Sex: Male

DRUGS (49)
  1. AREDIA [Suspect]
  2. ZOMETA [Suspect]
     Dosage: UNK
     Dates: end: 20060123
  3. ZOMETA [Suspect]
     Dosage: NO TREATMENT
  4. ZOMETA [Suspect]
     Dosage: UNK
     Dates: start: 20060601
  5. VELCADE [Concomitant]
  6. KYTRIL [Concomitant]
  7. DECADRON [Concomitant]
  8. LEVAQUIN [Concomitant]
  9. VIDAZA [Concomitant]
  10. DILTIAZEM [Concomitant]
  11. LIPITOR [Concomitant]
  12. PROSCAR [Concomitant]
  13. ALPHAGAN [Concomitant]
  14. LOVENOX [Concomitant]
  15. ZOCOR [Concomitant]
  16. ACIPHEX [Concomitant]
  17. ASPIRIN [Concomitant]
  18. EFFEXOR [Concomitant]
  19. MULTIVITAMIN ^LAPPE^ [Concomitant]
  20. RAZADYNE [Concomitant]
  21. NAMENDA [Concomitant]
  22. COUMADIN [Concomitant]
  23. PERCOCET [Concomitant]
  24. VINCRISTINE [Concomitant]
  25. ADRIAMYCIN PFS [Concomitant]
  26. MELPHALAN HYDROCHLORIDE [Concomitant]
  27. PENICILLIN VK [Concomitant]
  28. CHLORHEXIDINE [Concomitant]
  29. CELEXA [Concomitant]
  30. FISH OIL [Concomitant]
  31. AGGRENOX [Concomitant]
  32. DONEPEZIL HCL [Concomitant]
  33. DURAGESIC-100 [Concomitant]
  34. MORPHINE SULFATE [Concomitant]
  35. CEFTRIAXONE [Concomitant]
  36. FLUCONAZOLE [Concomitant]
  37. VITAMIN K TAB [Concomitant]
  38. AZITHROMYCIN [Concomitant]
  39. BRIMONIDINE [Concomitant]
  40. ARICEPT [Concomitant]
  41. NAPROXEN [Concomitant]
  42. LISINOPRIL [Concomitant]
  43. FUROSEMIDE [Concomitant]
  44. FENTANYL [Concomitant]
  45. VENLAFAXINE HYDROCHLORIDE [Concomitant]
  46. OXYCODONE HYDROCHLORIDE W/PARACETAMOL [Concomitant]
  47. CALCITONIN SALMON [Concomitant]
  48. WARFARIN SODIUM [Concomitant]
  49. SIMVASTATIN [Concomitant]

REACTIONS (66)
  - ADRENAL ADENOMA [None]
  - ANXIETY [None]
  - APNOEA [None]
  - ATRIAL FIBRILLATION [None]
  - BASAL CELL CARCINOMA [None]
  - BLOOD GLUCOSE INCREASED [None]
  - BONE DISORDER [None]
  - BONE LESION [None]
  - BONE MARROW TRANSPLANT [None]
  - BONE NEOPLASM MALIGNANT [None]
  - BONE PAIN [None]
  - BRAIN MASS [None]
  - BRUXISM [None]
  - BURSITIS [None]
  - CARDIAC ARREST [None]
  - CATARACT [None]
  - CEREBRAL INFARCTION [None]
  - CEREBROVASCULAR ACCIDENT [None]
  - CONFUSIONAL STATE [None]
  - CONSTIPATION [None]
  - DENTAL OPERATION [None]
  - DEPRESSED MOOD [None]
  - ELECTROCARDIOGRAM ABNORMAL [None]
  - ENDARTERECTOMY [None]
  - ESSENTIAL HYPERTENSION [None]
  - FATIGUE [None]
  - FEBRILE NEUTROPENIA [None]
  - GASTROOESOPHAGEAL REFLUX DISEASE [None]
  - GLYCOSYLATED HAEMOGLOBIN INCREASED [None]
  - HYPERCALCAEMIA [None]
  - HYPERTENSIVE NEPHROPATHY [None]
  - HYPOKALAEMIA [None]
  - HYPOPNOEA [None]
  - HYPOTENSION [None]
  - IMPAIRED FASTING GLUCOSE [None]
  - MELANOCYTIC NAEVUS [None]
  - MICROANGIOPATHY [None]
  - MUSCLE SPASMS [None]
  - MYALGIA [None]
  - NAUSEA [None]
  - NECK PAIN [None]
  - OEDEMA PERIPHERAL [None]
  - ORAL INFECTION [None]
  - OSTEONECROSIS OF JAW [None]
  - PAIN [None]
  - PAIN IN JAW [None]
  - PLASMACYTOMA [None]
  - PLEURAL EFFUSION [None]
  - PNEUMONIA [None]
  - PNEUMOTHORAX [None]
  - PULPITIS DENTAL [None]
  - RADIOTHERAPY [None]
  - RENAL ARTERY STENOSIS [None]
  - RENAL FAILURE ACUTE [None]
  - RESUSCITATION [None]
  - SKIN NEOPLASM EXCISION [None]
  - SKIN REACTION [None]
  - SNORING [None]
  - SWELLING [None]
  - THYROID DISORDER [None]
  - TOOTH EXTRACTION [None]
  - UMBILICAL HERNIA [None]
  - UMBILICAL HERNIA REPAIR [None]
  - URINARY TRACT INFECTION [None]
  - VISION BLURRED [None]
  - VISUAL FIELD DEFECT [None]
